FAERS Safety Report 4356081-7 (Version None)
Quarter: 2004Q2

REPORT INFORMATION
  Report Type: 
  Country: None (occurrence: None)
  Receive Date: 20040507
  Receipt Date: 20040507
  Transmission Date: 20050107
  Serious: Yes (Life-Threatening, Hospitalization)
  Sender: FDA-Public Use
  Company Number: None

PATIENT
  Age: 60 Year
  Sex: Male
  Weight: 97.5 kg

DRUGS (18)
  1. LOVENOX [Suspect]
  2. CLOPDIOGREL TAB [Suspect]
     Dosage: 300 MG PO
     Route: 048
     Dates: start: 20031024, end: 20031024
  3. METOPROLOL TAB [Concomitant]
  4. PROPOFOL [Concomitant]
  5. MIDAZOLAM HCL [Concomitant]
  6. ASPIRIN [Suspect]
     Dosage: 81 MG PO
     Route: 048
     Dates: start: 20031024, end: 20031106
  7. METHYLPREDNISOLONE [Suspect]
     Dosage: 80 MG IV
     Route: 042
     Dates: start: 20031024, end: 20031027
  8. SIMVASTATIN [Concomitant]
  9. CAPTOPRIL [Concomitant]
  10. THEOPHYLLINE [Concomitant]
  11. FELODIPINE [Concomitant]
  12. AZITHROMYCIN [Concomitant]
  13. ALBUTEROL [Concomitant]
  14. IPRATROPIUM BROMIDE [Concomitant]
  15. ALBUTEROL [Concomitant]
  16. DIPRIVAN [Concomitant]
  17. METOPROLOL [Concomitant]
  18. MIDAZOLAM HCL [Concomitant]

REACTIONS (2)
  - GASTROINTESTINAL HAEMORRHAGE [None]
  - HAEMATEMESIS [None]
